FAERS Safety Report 7305071-0 (Version None)
Quarter: 2011Q1

REPORT INFORMATION
  Report Type: 
  Country: None (occurrence: None)
  Receive Date: 20110222
  Receipt Date: 20110126
  Transmission Date: 20110831
  Serious: No
  Sender: FDA-Public Use
  Company Number: US-B.I. PHARMACEUTICALS,INC./RIDGEFIELD-2010-BP-15252BP

PATIENT
  Age: 76 Year
  Sex: Male

DRUGS (13)
  1. CALCIUM [Concomitant]
  2. SIMVASTATIN [Concomitant]
  3. ATENOLOL [Concomitant]
     Dosage: 25 MG
  4. RISEDRONATE [Concomitant]
     Dosage: 5 MG
  5. ERGOCALCIFEROL [Concomitant]
  6. PRADAXA [Suspect]
     Indication: HYPERTENSION
     Dosage: 300 MG
     Route: 048
     Dates: start: 20101222, end: 20101230
  7. CENTRUM SILVER [Concomitant]
  8. PROPAFENONE HCL [Concomitant]
     Dosage: 300 MG
  9. ZINC [Concomitant]
  10. PRADAXA [Suspect]
     Indication: ATRIAL FIBRILLATION
     Dosage: 300 MG
     Route: 048
     Dates: start: 20101210, end: 20101216
  11. ASA [Concomitant]
     Indication: ATRIAL FIBRILLATION
     Dosage: 81 MG
     Route: 048
     Dates: start: 20101210
  12. VITAMN B12 [Concomitant]
  13. MAGNESIUM [Concomitant]

REACTIONS (5)
  - RASH [None]
  - SKIN DISCOLOURATION [None]
  - FATIGUE [None]
  - PRURITUS [None]
  - MUSCULOSKELETAL STIFFNESS [None]
